FAERS Safety Report 5823722-4 (Version None)
Quarter: 2008Q3

REPORT INFORMATION
  Report Type: 
  Country: None (occurrence: None)
  Receive Date: 20080725
  Receipt Date: 20080715
  Transmission Date: 20090109
  Serious: Yes (Hospitalization)
  Sender: FDA-Public Use
  Company Number: GB-AMGEN-UK295225

PATIENT
  Sex: Male
  Weight: 125.5 kg

DRUGS (7)
  1. PANITUMUMAB [Suspect]
     Indication: COLORECTAL CANCER
     Route: 042
     Dates: start: 20080201
  2. IRINOTECAN HCL [Concomitant]
     Dates: start: 20080201
  3. METFORMIN HCL [Concomitant]
  4. SIMVASTATIN [Concomitant]
  5. RAMIPRIL [Concomitant]
  6. BENDROFLUMETHIAZIDE [Concomitant]
  7. OMEPRAZOLE [Concomitant]

REACTIONS (2)
  - CELLULITIS [None]
  - RASH [None]
